FAERS Safety Report 4581674-1 (Version None)
Quarter: 2005Q1

REPORT INFORMATION
  Report Type: 
  Country: None (occurrence: None)
  Receive Date: 20050214
  Receipt Date: 20041215
  Transmission Date: 20050727
  Serious: No
  Sender: FDA-Public Use
  Company Number: US-GLAXOSMITHKLINE-A0537424A

PATIENT
  Age: 64 Year
  Sex: Female

DRUGS (10)
  1. LAMICTAL [Suspect]
     Indication: BIPOLAR DISORDER
     Dosage: 125MG PER DAY
     Route: 048
     Dates: start: 20040601, end: 20050118
  2. ZESTRIL [Concomitant]
  3. TOPROL-XL [Concomitant]
  4. NEXIUM [Concomitant]
  5. ACTOS [Concomitant]
  6. LEXAPRO [Concomitant]
  7. WATER PILL [Concomitant]
     Route: 048
  8. BEXTRA [Concomitant]
  9. DIGITEK [Concomitant]
  10. STEROID [Concomitant]

REACTIONS (4)
  - BACK PAIN [None]
  - HYPOAESTHESIA [None]
  - PRURITUS [None]
  - RASH [None]
